FAERS Safety Report 5241036-0 (Version None)
Quarter: 2007Q1

REPORT INFORMATION
  Report Type: 
  Country: None (occurrence: None)
  Receive Date: 20070220
  Receipt Date: 20070212
  Transmission Date: 20070707
  Serious: Yes (Hospitalization, Other)
  Sender: FDA-Public Use
  Company Number: US-MERCK-0610USA07284

PATIENT
  Age: 76 Year
  Sex: Female

DRUGS (2)
  1. FOSAMAX [Suspect]
     Indication: OSTEOPOROSIS
     Route: 048
     Dates: start: 20020101, end: 20060101
  2. ATENOLOL [Concomitant]
     Route: 065

REACTIONS (2)
  - GASTROINTESTINAL ULCER [None]
  - HIP FRACTURE [None]
